FAERS Safety Report 11390220 (Version 1)
Quarter: 2015Q3

REPORT INFORMATION
  Report Type: Spontaneous
  Country: US (occurrence: None)
  Receive Date: 20150814
  Receipt Date: 20150814
  Transmission Date: 20151125
  Serious: Yes (Hospitalization)
  Sender: FDA-Public Use
  Company Number: None

PATIENT
  Age: 61 Year
  Sex: Male

DRUGS (14)
  1. ZINC SULFATE [Concomitant]
     Active Substance: ZINC SULFATE\ZINC SULFATE ANHYDROUS
  2. OMEPRAZOLE. [Concomitant]
     Active Substance: OMEPRAZOLE
  3. HARVONI [Suspect]
     Active Substance: LEDIPASVIR\SOFOSBUVIR
     Indication: HEPATITIS C
     Dosage: 90/140 MG
     Route: 048
     Dates: start: 20150311, end: 20150503
  4. AMLODIPINE [Concomitant]
     Active Substance: AMLODIPINE BESYLATE
  5. ZEMPLAR [Concomitant]
     Active Substance: PARICALCITOL
  6. LORATADINE. [Concomitant]
     Active Substance: LORATADINE
  7. PROGRAF [Concomitant]
     Active Substance: TACROLIMUS\TACROLIMUS ANHYDROUS
  8. MAGNESIUM OXIDE. [Concomitant]
     Active Substance: MAGNESIUM OXIDE
  9. ASPIRIN. [Concomitant]
     Active Substance: ASPIRIN
  10. METOPROLOL [Concomitant]
     Active Substance: METOPROLOL
  11. VITAMIN C [Concomitant]
     Active Substance: ASCORBIC ACID
  12. ALBUTEROL. [Concomitant]
     Active Substance: ALBUTEROL
  13. RIBAVIRIN 1300 MG [Suspect]
     Active Substance: RIBAVIRIN
     Route: 048
  14. EPOGEN [Concomitant]
     Active Substance: ERYTHROPOIETIN

REACTIONS (5)
  - Anaemia [None]
  - Dyspnoea exertional [None]
  - Presyncope [None]
  - Fatigue [None]
  - Dizziness [None]

NARRATIVE: CASE EVENT DATE: 20150310
